FAERS Safety Report 14078197 (Version 1)
Quarter: 2017Q4

REPORT INFORMATION
  Report Type: Spontaneous
  Country: US (occurrence: US)
  Receive Date: 20171011
  Receipt Date: 20171011
  Transmission Date: 20180321
  Serious: Yes (Hospitalization)
  Sender: FDA-Public Use
  Company Number: None

PATIENT
  Age: 72 Year
  Sex: Male
  Weight: 102.15 kg

DRUGS (9)
  1. HYDROCODON ACETAMINOPHEN [Concomitant]
  2. FINASTERIDE. [Concomitant]
     Active Substance: FINASTERIDE
  3. LISINOPRIL TAB 20MG [Suspect]
     Active Substance: LISINOPRIL
     Indication: PROPHYLAXIS
     Dosage: ?          QUANTITY:90 TABLET(S);?
     Route: 048
  4. PIOGLITAZONE HCL [Concomitant]
     Active Substance: PIOGLITAZONE
  5. ALLOPURINOL. [Concomitant]
     Active Substance: ALLOPURINOL
  6. ASPIRIN. [Concomitant]
     Active Substance: ASPIRIN
  7. LISINOPRIL TAB 20MG [Suspect]
     Active Substance: LISINOPRIL
     Indication: RENAL DISORDER
     Dosage: ?          QUANTITY:90 TABLET(S);?
     Route: 048
  8. ROSUVASTATIN CALCIUM. [Concomitant]
     Active Substance: ROSUVASTATIN CALCIUM
  9. TAMSULOSIN HYDROCHLORIDE. [Concomitant]
     Active Substance: TAMSULOSIN HYDROCHLORIDE

REACTIONS (4)
  - Swelling face [None]
  - Oropharyngeal pain [None]
  - Dysphonia [None]
  - Lip swelling [None]

NARRATIVE: CASE EVENT DATE: 20170922
